FAERS Safety Report 8933777 (Version 2)
Quarter: 2012Q4

REPORT INFORMATION
  Report Type: Report from Study
  Country: US (occurrence: US)
  Receive Date: 20121129
  Receipt Date: 20121224
  Transmission Date: 20130627
  Serious: Yes (Death)
  Sender: FDA-Public Use
  Company Number: US-ROCHE-1158828

PATIENT
  Age: 53 Year
  Sex: Male
  Weight: 81.27 kg

DRUGS (4)
  1. CAPECITABINE [Suspect]
     Indication: NEOPLASM MALIGNANT
     Route: 048
     Dates: start: 20110112, end: 20110212
  2. CAPECITABINE [Suspect]
     Route: 065
     Dates: start: 20120112, end: 20120112
  3. EPIRUBICIN [Concomitant]
     Indication: OESOPHAGEAL CARCINOMA
     Route: 042
     Dates: start: 20110112, end: 20110212
  4. OXALIPLATIN [Concomitant]
     Indication: OESOPHAGEAL CARCINOMA
     Route: 042
     Dates: start: 20110112, end: 20110212

REACTIONS (3)
  - Death [Fatal]
  - Nausea [Recovered/Resolved]
  - Abdominal pain [Recovered/Resolved]
